FAERS Safety Report 4681578-X (Version None)
Quarter: 2005Q2

REPORT INFORMATION
  Report Type: 
  Country: None (occurrence: None)
  Receive Date: 20050602
  Receipt Date: 20050516
  Transmission Date: 20051028
  Serious: No
  Sender: FDA-Public Use
  Company Number: US_0502112081

PATIENT
  Age: 55 Year
  Sex: Female
  Weight: 115.2136 kg

DRUGS (19)
  1. CYMBALTA [Suspect]
     Indication: DIABETIC NEUROPATHY
     Dosage: 60 MG DAY
     Dates: start: 20041222, end: 20041224
  2. CYMBALTA [Suspect]
     Indication: PAIN
     Dosage: 60 MG DAY
     Dates: start: 20041222, end: 20041224
  3. NEURONTIN (GABAPENTIN PFIZER) [Concomitant]
  4. FLEXERIL [Concomitant]
  5. VICODIN [Concomitant]
  6. ESTRACE [Concomitant]
  7. DEMADEX [Concomitant]
  8. NEXIUM [Concomitant]
  9. AMARYL [Concomitant]
  10. CARDIZEM-SLOW RELEASE (DILTIAZEM HYDROCHLORIDE) [Concomitant]
  11. MAGNESIUM [Concomitant]
  12. NASONEX [Concomitant]
  13. SEREVENT [Concomitant]
  14. FLOVENT [Concomitant]
  15. COMBIVENT [Concomitant]
  16. COUMADIN [Concomitant]
  17. INSULIN [Concomitant]
  18. BENADRYL [Concomitant]
  19. TYLENOL (CAPLET) [Concomitant]

REACTIONS (3)
  - CHEST PAIN [None]
  - ELECTROCARDIOGRAM ST SEGMENT ELEVATION [None]
  - HYPOAESTHESIA [None]
